FAERS Safety Report 7484109-4 (Version None)
Quarter: 2011Q2

REPORT INFORMATION
  Report Type: 
  Country: None (occurrence: None)
  Receive Date: 20110517
  Receipt Date: 20090822
  Transmission Date: 20111010
  Serious: Yes (Death, Hospitalization, Other)
  Sender: FDA-Public Use
  Company Number: US-BAYER-200930563NA

PATIENT
  Age: 74 Year
  Sex: Male
  Weight: 100 kg

DRUGS (15)
  1. LOPRESSOR [Concomitant]
     Dosage: 100 MG, BID
     Route: 048
  2. NITROGLYCERIN [Concomitant]
     Route: 042
  3. PLAVIX [Concomitant]
     Dosage: 75 MG, QD
     Route: 048
     Dates: start: 20061208
  4. HEPARIN [Concomitant]
     Dosage: 18,000
     Route: 042
     Dates: start: 20061211, end: 20061211
  5. LEVAQUIN [Concomitant]
     Dosage: 500 MG, UNK
     Route: 042
     Dates: start: 20061211, end: 20061211
  6. CLONIDINE [Concomitant]
     Dosage: 0.3 MG, BID
     Route: 048
  7. HYDRALAZINE HCL [Concomitant]
     Dosage: 10/20 MG
     Route: 042
     Dates: start: 20061210, end: 20061210
  8. LOVASTATIN [Concomitant]
     Dosage: 80 MG, QD
     Route: 048
  9. HEPARIN [Concomitant]
     Dosage: UNK
     Route: 042
     Dates: start: 20061208, end: 20061210
  10. TRASYLOL [Suspect]
     Dosage: 50 CC/HOUR INFUSION
     Route: 042
     Dates: start: 20061211, end: 20061211
  11. INSULIN [Concomitant]
     Dosage: 6 U, UNK
     Route: 042
     Dates: start: 20061211, end: 20061211
  12. INSULIN [Concomitant]
  13. ACETYLSALICYLIC ACID SRT [Concomitant]
     Dosage: 81 MG, QD
     Route: 048
     Dates: start: 20061208, end: 20061211
  14. TRASYLOL [Suspect]
     Indication: CORONARY ARTERY BYPASS
     Dosage: 200 ML, ONCE, LOADING DOSE
     Route: 042
     Dates: start: 20061211, end: 20061211
  15. VANCOMYCIN [Concomitant]
     Dosage: 1 G, UNK
     Route: 042
     Dates: start: 20061211, end: 20061211

REACTIONS (5)
  - RENAL FAILURE ACUTE [None]
  - UNEVALUABLE EVENT [None]
  - INJURY [None]
  - PAIN [None]
  - RENAL FAILURE [None]
